FAERS Safety Report 4847087-X (Version None)
Quarter: 2005Q4

REPORT INFORMATION
  Report Type: 
  Country: None (occurrence: None)
  Receive Date: 20051207
  Receipt Date: 20051031
  Transmission Date: 20060501
  Serious: Yes (Life-Threatening)
  Sender: FDA-Public Use
  Company Number: 2005AP06244

PATIENT
  Age: 74 Year
  Sex: Male

DRUGS (2)
  1. CASODEX [Suspect]
     Indication: PROSTATE CANCER
     Route: 048
     Dates: start: 20011001, end: 20020601
  2. LHRH [Concomitant]
     Indication: HORMONE REPLACEMENT THERAPY
     Dates: start: 20000901

REACTIONS (3)
  - METASTASES TO BLADDER [None]
  - METASTASES TO LYMPH NODES [None]
  - PROSTATE CANCER [None]
